FAERS Safety Report 10329257 (Version 3)
Quarter: 2014Q3

REPORT INFORMATION
  Report Type: Spontaneous
  Country: US (occurrence: US)
  Receive Date: 20140721
  Receipt Date: 20140930
  Transmission Date: 20150326
  Serious: Yes (Other)
  Sender: FDA-Public Use
  Company Number: US-TEVA-495616USA

PATIENT
  Age: 24 Year
  Sex: Female
  Weight: 50.39 kg

DRUGS (2)
  1. PRENATAL VITAMINS [Concomitant]
     Active Substance: VITAMINS
     Indication: BREAST FEEDING
  2. PARAGARD T380A [Suspect]
     Active Substance: COPPER
     Indication: CONTRACEPTION
     Route: 063
     Dates: start: 20140612, end: 20140630

REACTIONS (6)
  - Device dislocation [Recovered/Resolved]
  - Metrorrhagia [Recovered/Resolved]
  - Dysmenorrhoea [Recovered/Resolved]
  - Pain [Unknown]
  - Exposure during breast feeding [Unknown]
  - Medical device complication [Unknown]

NARRATIVE: CASE EVENT DATE: 20140630
